FAERS Safety Report 12552179 (Version 1)
Quarter: 2016Q3

REPORT INFORMATION
  Report Type: Spontaneous
  Country: US (occurrence: None)
  Receive Date: 20160712
  Receipt Date: 20160712
  Transmission Date: 20161109
  Serious: Yes (Other)
  Sender: FDA-Public Use
  Company Number: None

PATIENT
  Age: 54 Year
  Sex: Male
  Weight: 88.91 kg

DRUGS (8)
  1. HYDROXYZINE [Concomitant]
     Active Substance: HYDROXYZINE\HYDROXYZINE HYDROCHLORIDE
  2. TYLENOL [Concomitant]
     Active Substance: ACETAMINOPHEN
  3. BENADRYL [Concomitant]
     Active Substance: DIPHENHYDRAMINE HYDROCHLORIDE
  4. OXYCONTIN [Suspect]
     Active Substance: OXYCODONE HYDROCHLORIDE
     Indication: BACK INJURY
     Dosage: 20MG UP TO 40MG  2 TO 3 2-3XDAY MOUTH
     Route: 048
     Dates: start: 20070520
  5. IBUPROFEN. [Concomitant]
     Active Substance: IBUPROFEN
  6. FENOFIBRATE. [Concomitant]
     Active Substance: FENOFIBRATE
  7. CRESTOR [Concomitant]
     Active Substance: ROSUVASTATIN CALCIUM
  8. TYLENOL [Concomitant]
     Active Substance: ACETAMINOPHEN

REACTIONS (5)
  - Feeling abnormal [None]
  - Gambling [None]
  - Obsessive-compulsive disorder [None]
  - Cerebral disorder [None]
  - Economic problem [None]

NARRATIVE: CASE EVENT DATE: 20100831
